FAERS Safety Report 5760118-8 (Version None)
Quarter: 2008Q2

REPORT INFORMATION
  Report Type: 
  Country: None (occurrence: None)
  Receive Date: 20080605
  Receipt Date: 20080602
  Transmission Date: 20081010
  Serious: Yes (Hospitalization)
  Sender: FDA-Public Use
  Company Number: TW-BOEHRINGER INGELHEIM GMBH, GERMANY-2008-BP-08577RO

PATIENT
  Age: 67 Year
  Sex: Female

DRUGS (6)
  1. LITHIUM CARBONATE [Suspect]
     Indication: BIPOLAR DISORDER
  2. CLONAZEPAM [Suspect]
     Indication: BIPOLAR DISORDER
  3. FLUID HYDRATION [Concomitant]
     Indication: NEPHROGENIC DIABETES INSIPIDUS
  4. AMILORIDE HCL AND HYDROCHLOROTHIAZIDE [Concomitant]
     Indication: NEPHROGENIC DIABETES INSIPIDUS
  5. NAPROXEN [Concomitant]
     Indication: NEPHROGENIC DIABETES INSIPIDUS
  6. LEVODOPA [Concomitant]
     Indication: PARKINSONISM

REACTIONS (9)
  - ELECTROLYTE IMBALANCE [None]
  - HYPERPARATHYROIDISM [None]
  - LEUKOCYTOSIS [None]
  - NEPHROGENIC DIABETES INSIPIDUS [None]
  - PARATHYROID TUMOUR BENIGN [None]
  - PARKINSONISM [None]
  - PYURIA [None]
  - RENAL IMPAIRMENT [None]
  - THERAPEUTIC AGENT TOXICITY [None]
